FAERS Safety Report 15998665 (Version 1)
Quarter: 2019Q1

REPORT INFORMATION
  Report Type: Spontaneous
  Country: US (occurrence: US)
  Receive Date: 20190223
  Receipt Date: 20190223
  Transmission Date: 20190418
  Serious: Yes (Hospitalization, Other)
  Sender: FDA-Public Use
  Company Number: US-ACCORD-109028

PATIENT
  Age: 42 Year
  Sex: Female

DRUGS (1)
  1. CAPECITABINE. [Suspect]
     Active Substance: CAPECITABINE
     Indication: CHOLANGIOCARCINOMA
     Dosage: FOR 14-DAY CYCLES REPEATING EVERY 28 DAYS

REACTIONS (3)
  - Cytomegalovirus infection [Unknown]
  - Haematochezia [Recovered/Resolved]
  - Off label use [Unknown]
